FAERS Safety Report 11451828 (Version 1)
Quarter: 2015Q3

REPORT INFORMATION
  Report Type: Spontaneous
  Country: US (occurrence: US)
  Receive Date: 20150903
  Receipt Date: 20150903
  Transmission Date: 20151125
  Serious: No
  Sender: FDA-Public Use
  Company Number: US-ROCHE-1014623

PATIENT
  Sex: Male

DRUGS (2)
  1. PEGASYS [Suspect]
     Active Substance: PEGINTERFERON ALFA-2A
     Indication: HEPATITIS C
     Route: 065
     Dates: start: 20111101
  2. COPEGUS [Suspect]
     Active Substance: RIBAVIRIN
     Indication: HEPATITIS C
     Dosage: DIVIDED DOSE
     Route: 065
     Dates: start: 20111101

REACTIONS (9)
  - Hepatic pain [Recovered/Resolved]
  - Abdominal discomfort [Unknown]
  - Mouth haemorrhage [Recovered/Resolved]
  - Visual impairment [Unknown]
  - Platelet count decreased [Unknown]
  - Red blood cell count decreased [Unknown]
  - Abdominal distension [Recovered/Resolved]
  - White blood cell count decreased [Unknown]
  - Back pain [Unknown]
